FAERS Safety Report 9501131 (Version 1)
Quarter: 2013Q3

REPORT INFORMATION
  Report Type: Spontaneous
  Country: BR (occurrence: BR)
  Receive Date: 20130905
  Receipt Date: 20130905
  Transmission Date: 20140515
  Serious: Yes (Life-Threatening, Hospitalization)
  Sender: FDA-Public Use
  Company Number: BR-ASTRAZENECA-2013SE67062

PATIENT
  Age: 28228 Day
  Sex: Male
  Weight: 82 kg

DRUGS (2)
  1. CRESTOR [Suspect]
     Indication: BLOOD TRIGLYCERIDES ABNORMAL
     Route: 048
  2. ASA [Concomitant]

REACTIONS (1)
  - Coronary artery occlusion [Recovered/Resolved]
